FAERS Safety Report 17833677 (Version 1)
Quarter: 2020Q2

REPORT INFORMATION
  Report Type: Spontaneous
  Country: US (occurrence: US)
  Receive Date: 20200527
  Receipt Date: 20200527
  Transmission Date: 20200714
  Serious: Yes (Death)
  Sender: FDA-Public Use
  Company Number: None

PATIENT
  Age: 77 Year
  Sex: Male
  Weight: 72.3 kg

DRUGS (1)
  1. REMDESIVIR. [Suspect]
     Active Substance: REMDESIVIR
     Indication: COVID-19
     Dates: start: 20200520, end: 20200527

REACTIONS (5)
  - Condition aggravated [None]
  - Respiratory disorder [None]
  - Hypoxia [None]
  - Dyspnoea [None]
  - Lethargy [None]

NARRATIVE: CASE EVENT DATE: 20200527
